FAERS Safety Report 4359282-7 (Version None)
Quarter: 2004Q2

REPORT INFORMATION
  Report Type: 
  Country: None (occurrence: None)
  Receive Date: 20040518
  Receipt Date: 20040423
  Transmission Date: 20050107
  Serious: Yes (Life-Threatening, Hospitalization)
  Sender: FDA-Public Use
  Company Number: PHBS2004JP05547

PATIENT
  Age: 40 Year
  Sex: Male
  Weight: 79 kg

DRUGS (7)
  1. TEGRETOL [Suspect]
     Indication: SCHIZOPHRENIA
     Dosage: 200 MG, TID
     Route: 048
     Dates: start: 20030201, end: 20040407
  2. AKINETON [Concomitant]
     Indication: PARKINSONISM
     Dosage: 6 MG/DAY
     Route: 048
     Dates: start: 20020101
  3. RISPERDAL [Concomitant]
     Indication: SCHIZOPHRENIA
     Dosage: 3 MG/DAY
     Route: 048
     Dates: start: 20020101
  4. HIRNAMIN [Concomitant]
     Indication: SCHIZOPHRENIA
     Dosage: 150 MG/DAY
     Route: 048
     Dates: start: 20020101
  5. LIMAS [Concomitant]
     Indication: MANIA
     Dosage: 800 MG/DAY
     Route: 048
     Dates: start: 20020101
  6. BENZALIN [Concomitant]
     Indication: INSOMNIA
     Dosage: 5 MG/DAY
     Route: 048
     Dates: start: 20020101
  7. MYSLEE [Concomitant]
     Indication: INSOMNIA
     Dosage: 1 DF/DAY
     Route: 048
     Dates: start: 20020101

REACTIONS (12)
  - BLOOD PRESSURE DECREASED [None]
  - DEPRESSED LEVEL OF CONSCIOUSNESS [None]
  - DILATATION VENTRICULAR [None]
  - DIZZINESS [None]
  - DYSPNOEA [None]
  - ELECTROCARDIOGRAM ABNORMAL [None]
  - FALL [None]
  - HYPOXIA [None]
  - LUNG DISORDER [None]
  - MOBILITY DECREASED [None]
  - PULMONARY EMBOLISM [None]
  - PULMONARY HYPERTENSION [None]
